FAERS Safety Report 7299457-0 (Version None)
Quarter: 2011Q1

REPORT INFORMATION
  Report Type: 
  Country: None (occurrence: None)
  Receive Date: 20110217
  Receipt Date: 20110210
  Transmission Date: 20110831
  Serious: Yes (Disabling)
  Sender: FDA-Public Use
  Company Number: B0700240A

PATIENT
  Sex: Female

DRUGS (2)
  1. FLIXOTIDE MDI [Suspect]
     Indication: ASTHMA
     Dosage: 1000MCG TWICE PER DAY
     Route: 055
     Dates: start: 19990101
  2. CORTIZONE [Concomitant]
     Dates: start: 19990101, end: 20080626

REACTIONS (6)
  - ORAL CANDIDIASIS [None]
  - CUSHINGOID [None]
  - OESOPHAGEAL CANDIDIASIS [None]
  - BLOOD CORTICOTROPHIN DECREASED [None]
  - SKIN ATROPHY [None]
  - BLOOD CORTISOL DECREASED [None]
